FAERS Safety Report 5007505-3 (Version None)
Quarter: 2006Q2

REPORT INFORMATION
  Report Type: 
  Country: None (occurrence: None)
  Receive Date: 20060403
  Receipt Date: 20051123
  Transmission Date: 20061013
  Serious: Yes (Hospitalization, Other)
  Sender: FDA-Public Use
  Company Number: 22697

PATIENT
  Age: 65 Year
  Sex: Female
  Weight: 72 kg

DRUGS (1)
  1. ADRIAMYCIN (DOXORUBICIN) INJ. USP 10MG/5ML - BEDFORD LABS, INC. [Suspect]
     Indication: BREAST CANCER
     Dosage: 100MG/IV
     Route: 042

REACTIONS (4)
  - ATRIAL FIBRILLATION [None]
  - DIARRHOEA [None]
  - NAUSEA [None]
  - VOMITING [None]
